FAERS Safety Report 7937019-X (Version None)
Quarter: 2011Q4

REPORT INFORMATION
  Report Type: 
  Country: None (occurrence: None)
  Receive Date: 20111123
  Receipt Date: 20111114
  Transmission Date: 20120403
  Serious: Yes (Other)
  Sender: FDA-Public Use
  Company Number: BR-ROCHE-1014885

PATIENT
  Sex: Female

DRUGS (1)
  1. XOLAIR [Suspect]
     Indication: ASTHMA
     Route: 058
     Dates: start: 20111102

REACTIONS (4)
  - THROAT IRRITATION [None]
  - BLOOD PRESSURE INCREASED [None]
  - EAR DISCOMFORT [None]
  - LARYNGEAL OEDEMA [None]
